FAERS Safety Report 11603784 (Version 1)
Quarter: 2015Q4

REPORT INFORMATION
  Report Type: Spontaneous
  Country: US (occurrence: US)
  Receive Date: 20151007
  Receipt Date: 20151007
  Transmission Date: 20160304
  Serious: Yes (Other)
  Sender: FDA-Public Use
  Company Number: US-ROCHE-1642880

PATIENT
  Age: 75 Year
  Sex: Male

DRUGS (1)
  1. GAZYVA [Suspect]
     Active Substance: OBINUTUZUMAB
     Indication: CHRONIC LYMPHOCYTIC LEUKAEMIA
     Dosage: 25MG/HOUR, GIVEN OVER FOUR HOURS.
     Route: 042
     Dates: start: 20151005

REACTIONS (4)
  - Hypotension [Unknown]
  - Vomiting [Unknown]
  - Syncope [Unknown]
  - Nausea [Unknown]
